FAERS Safety Report 15458889 (Version 2)
Quarter: 2018Q4

REPORT INFORMATION
  Report Type: Spontaneous
  Country: US (occurrence: US)
  Receive Date: 20181003
  Receipt Date: 20181121
  Transmission Date: 20190204
  Serious: Yes (Other)
  Sender: FDA-Public Use
  Company Number: US-SA-2018SA272536

PATIENT
  Age: 67 Year
  Sex: Female
  Weight: 75 kg

DRUGS (3)
  1. TAXOTERE [Suspect]
     Active Substance: DOCETAXEL
     Indication: BREAST CANCER FEMALE
     Dosage: 139 MG, Q3W
     Route: 042
     Dates: start: 20040611, end: 20040611
  2. TAXOTERE [Suspect]
     Active Substance: DOCETAXEL
     Dosage: 139 MG, Q3W
     Route: 042
     Dates: start: 20040924, end: 20040924
  3. TENORMIN [Concomitant]
     Active Substance: ATENOLOL

REACTIONS (2)
  - Emotional distress [Unknown]
  - Alopecia [Unknown]
